FAERS Safety Report 8426697-7 (Version None)
Quarter: 2012Q2

REPORT INFORMATION
  Report Type: 
  Country: None (occurrence: None)
  Receive Date: 20120611
  Receipt Date: 20120605
  Transmission Date: 20120825
  Serious: Yes (Death)
  Sender: FDA-Public Use
  Company Number: US-PFIZER INC-2012063355

PATIENT
  Sex: Male
  Weight: 93.4 kg

DRUGS (2)
  1. MS CONTIN [Concomitant]
     Indication: PAIN
     Dosage: (Q 12 HRS)
  2. SUTENT [Suspect]
     Indication: METASTATIC RENAL CELL CARCINOMA
     Dosage: 50 MG, 1X/DAY FOR 2 WEEKS THEN 1 WEEK OFF
     Route: 048
     Dates: start: 20120221, end: 20120510

REACTIONS (11)
  - DRY MOUTH [None]
  - ABDOMINAL DISCOMFORT [None]
  - ANAEMIA [None]
  - DRY SKIN [None]
  - SKIN FISSURES [None]
  - VOMITING [None]
  - RESPIRATORY FAILURE [None]
  - PLEURAL EFFUSION [None]
  - PRURITUS [None]
  - OEDEMA PERIPHERAL [None]
  - NASAL DRYNESS [None]
